FAERS Safety Report 5423780-5 (Version None)
Quarter: 2007Q3

REPORT INFORMATION
  Report Type: 
  Country: None (occurrence: None)
  Receive Date: 20070823
  Receipt Date: 20070814
  Transmission Date: 20080115
  Serious: Yes (Other)
  Sender: FDA-Public Use
  Company Number: PHEH2007US08970

PATIENT
  Age: 29 Year
  Sex: Female
  Weight: 53 kg

DRUGS (6)
  1. CLOFAZIMINE [Suspect]
     Indication: MYCOBACTERIUM AVIUM COMPLEX INFECTION
     Dosage: 100MG QD
     Dates: start: 20061101, end: 20070601
  2. AZITHROMYCIN [Concomitant]
     Indication: NOCARDIOSIS
     Dosage: 600MG QD
     Dates: start: 20070601
  3. BACTRIM [Concomitant]
     Indication: NOCARDIOSIS
     Dosage: 500/160 QD
  4. VORICONAZOLE [Concomitant]
     Indication: ASPERGILLOSIS
     Dosage: 200MG BID
     Dates: start: 20070601
  5. CASPOFUNGIN [Concomitant]
     Indication: ASPERGILLOSIS
     Dosage: 5MG QD
     Route: 042
  6. TACROLIMUS [Concomitant]
     Indication: LUNG TRANSPLANT REJECTION
     Dosage: 4MG Q12H
     Dates: start: 20070601

REACTIONS (4)
  - CONFUSIONAL STATE [None]
  - DYSPNOEA [None]
  - FEEDING TUBE COMPLICATION [None]
  - INTUBATION [None]
